FAERS Safety Report 21265187 (Version 1)
Quarter: 2022Q3

REPORT INFORMATION
  Report Type: Spontaneous
  Country: US (occurrence: None)
  Receive Date: 20220826
  Receipt Date: 20220826
  Transmission Date: 20221027
  Serious: No
  Sender: FDA-Public Use
  Company Number: None

PATIENT
  Age: 83 Year
  Sex: Male
  Weight: 90 kg

DRUGS (3)
  1. METFORMIN [Suspect]
     Active Substance: METFORMIN HYDROCHLORIDE
     Indication: Diabetes mellitus
     Dosage: OTHER QUANTITY : 3 TABLET(S);?OTHER FREQUENCY : 2 AM, 1 PM;?
     Route: 048
  2. TERAZOSIN [Concomitant]
     Active Substance: TERAZOSIN HYDROCHLORIDE
  3. AMLODIPINE BESYLATE [Concomitant]
     Active Substance: AMLODIPINE BESYLATE

REACTIONS (5)
  - Abdominal pain upper [None]
  - Abdominal pain upper [None]
  - Flatulence [None]
  - Diarrhoea [None]
  - Product substitution issue [None]

NARRATIVE: CASE EVENT DATE: 20220805
